FAERS Safety Report 6603488-0 (Version None)
Quarter: 2010Q1

REPORT INFORMATION
  Report Type: 
  Country: None (occurrence: None)
  Receive Date: 20100226
  Receipt Date: 20090711
  Transmission Date: 20100710
  Serious: No
  Sender: FDA-Public Use
  Company Number: A0797818A

PATIENT
  Sex: Female

DRUGS (1)
  1. VALTREX [Suspect]
     Indication: ILL-DEFINED DISORDER
     Dates: start: 20090701

REACTIONS (1)
  - DRUG INEFFECTIVE [None]
